FAERS Safety Report 8245578-5 (Version None)
Quarter: 2012Q1

REPORT INFORMATION
  Report Type: 
  Country: None (occurrence: None)
  Receive Date: 20120330
  Receipt Date: 20120319
  Transmission Date: 20120608
  Serious: Yes (Life-Threatening, Hospitalization)
  Sender: FDA-Public Use
  Company Number: JP-BRISTOL-MYERS SQUIBB COMPANY-16453748

PATIENT
  Age: 62 Year
  Sex: Male
  Weight: 51 kg

DRUGS (4)
  1. ERBITUX [Suspect]
     Indication: COLON CANCER
     Dosage: 600MG,17-17JAN12;400MG -21FEB12
     Route: 042
     Dates: start: 20120117, end: 20120221
  2. IRINOTECAN HCL [Suspect]
     Indication: COLON CANCER
     Dosage: ON 14FEB2012 TAKEN WITH ERBIUX
     Route: 042
     Dates: start: 20120117, end: 20120214
  3. DECADRON [Concomitant]
     Indication: PREMEDICATION
     Route: 041
     Dates: start: 20120117, end: 20120221
  4. FAMOTIDINE [Concomitant]
     Indication: PREMEDICATION
     Route: 041
     Dates: start: 20120117, end: 20120221

REACTIONS (1)
  - PLATELET COUNT DECREASED [None]
